FAERS Safety Report 15961663 (Version 1)
Quarter: 2019Q1

REPORT INFORMATION
  Report Type: Spontaneous
  Country: US (occurrence: US)
  Receive Date: 20190214
  Receipt Date: 20190214
  Transmission Date: 20190417
  Serious: No
  Sender: FDA-Public Use
  Company Number: US-MITSUBISHI TANABE PHARMA CORPORATION-MTDA2019-0005054

PATIENT
  Age: 59 Year
  Sex: Female
  Weight: 83.99 kg

DRUGS (6)
  1. MICARDIS [Concomitant]
     Active Substance: TELMISARTAN
  2. RILUZOLE. [Concomitant]
     Active Substance: RILUZOLE
  3. RADICAVA [Suspect]
     Active Substance: EDARAVONE
     Indication: AMYOTROPHIC LATERAL SCLEROSIS
     Route: 042
     Dates: start: 201806
  4. GLYCOPYRRATE [Concomitant]
  5. GABAPENTIN. [Concomitant]
     Active Substance: GABAPENTIN
  6. ARMOUR THYROID [Concomitant]
     Active Substance: THYROID, PORCINE

REACTIONS (2)
  - Device occlusion [Unknown]
  - Device occlusion [Unknown]

NARRATIVE: CASE EVENT DATE: 201811
